FAERS Safety Report 14255055 (Version 2)
Quarter: 2017Q4

REPORT INFORMATION
  Report Type: Spontaneous
  Country: RU (occurrence: RU)
  Receive Date: 20171206
  Receipt Date: 20171228
  Transmission Date: 20180321
  Serious: Yes (Other)
  Sender: FDA-Public Use
  Company Number: RU-ASTRAZENECA-2017SF22731

PATIENT
  Age: 61 Year
  Sex: Male
  Weight: 90 kg

DRUGS (8)
  1. EPLERENONE. [Concomitant]
     Active Substance: EPLERENONE
  2. CONCOR [Concomitant]
     Active Substance: BISOPROLOL FUMARATE
  3. BRILINTA [Suspect]
     Active Substance: TICAGRELOR
     Indication: ANGINA PECTORIS
     Route: 048
     Dates: start: 201611
  4. BRILINTA [Suspect]
     Active Substance: TICAGRELOR
     Indication: STENT PLACEMENT
     Route: 048
     Dates: start: 201611
  5. AMLODIPINE [Concomitant]
     Active Substance: AMLODIPINE BESYLATE
  6. THROMBO ASS [Concomitant]
     Active Substance: ASPIRIN
     Dates: start: 20171120
  7. LISINOPRIL. [Concomitant]
     Active Substance: LISINOPRIL
  8. TORVACARD [Concomitant]
     Active Substance: ATORVASTATIN CALCIUM

REACTIONS (5)
  - Contusion [Recovered/Resolved]
  - Product use issue [Not Recovered/Not Resolved]
  - Vascular stent occlusion [Not Recovered/Not Resolved]
  - Off label use [Not Recovered/Not Resolved]
  - Bleeding time prolonged [Recovered/Resolved]

NARRATIVE: CASE EVENT DATE: 201709
